FAERS Safety Report 9204723 (Version 1)
Quarter: 2013Q2

REPORT INFORMATION
  Report Type: Spontaneous
  Country: US (occurrence: US)
  Receive Date: 20130402
  Receipt Date: 20130402
  Transmission Date: 20140414
  Serious: Yes (Death)
  Sender: FDA-Public Use
  Company Number: US-GLAXOSMITHKLINE-A0745467A

PATIENT
  Age: 67 Year
  Sex: Male
  Weight: 79.5 kg

DRUGS (1)
  1. AVANDIA [Suspect]
     Indication: TYPE 2 DIABETES MELLITUS
     Dosage: 4MG PER DAY
     Route: 048
     Dates: end: 20061226

REACTIONS (5)
  - Cardio-respiratory arrest [Fatal]
  - Blood cholesterol increased [Unknown]
  - Weight increased [Unknown]
  - Cardiac disorder [Unknown]
  - Cardiac disorder [Unknown]
